FAERS Safety Report 20861500 (Version 3)
Quarter: 2023Q1

REPORT INFORMATION
  Report Type: Report from Study
  Country: FR (occurrence: FR)
  Receive Date: 20220523
  Receipt Date: 20230203
  Transmission Date: 20230418
  Serious: Yes (Hospitalization, Disabling)
  Sender: FDA-Public Use
  Company Number: FR-ROCHE-3085611

PATIENT
  Age: 77 Year
  Sex: Male
  Weight: 55 kg

DRUGS (8)
  1. IRINOTECAN HYDROCHLORIDE [Suspect]
     Active Substance: IRINOTECAN HYDROCHLORIDE
     Indication: Neoplasm
     Dosage: FREQUENCY: 2 WEEK, DATE OF MOST RECENT DOSE 10MAR2022
     Route: 042
     Dates: start: 20220310, end: 20220310
  2. OXALIPLATIN [Suspect]
     Active Substance: OXALIPLATIN
     Indication: Neoplasm
     Dosage: 135 MG, EVERY 2 WEEKS
     Route: 042
     Dates: start: 20220310, end: 20220421
  3. FLUOROURACIL [Suspect]
     Active Substance: FLUOROURACIL
     Indication: Neoplasm
     Dosage: 3750 MG EVERY 2 WEEKS
     Route: 042
     Dates: start: 20220310, end: 20220421
  4. FOLIC ACID [Suspect]
     Active Substance: FOLIC ACID
     Indication: Neoplasm
     Dosage: 624 MG EVERY 2 WEEKS
     Route: 042
     Dates: start: 20220310, end: 20220421
  5. ACETAMINOPHEN [Concomitant]
     Active Substance: ACETAMINOPHEN
     Dosage: UNK
  6. SILODOSIN [Concomitant]
     Active Substance: SILODOSIN
  7. TRAMADOL [Concomitant]
     Active Substance: TRAMADOL
  8. CANDESARTAN CILEXETIL [Concomitant]
     Active Substance: CANDESARTAN CILEXETIL

REACTIONS (1)
  - Neoplasm progression [Recovered/Resolved]

NARRATIVE: CASE EVENT DATE: 20220318
